FAERS Safety Report 18332372 (Version 2)
Quarter: 2020Q4

REPORT INFORMATION
  Report Type: Spontaneous
  Country: US (occurrence: US)
  Receive Date: 20200930
  Receipt Date: 20201124
  Transmission Date: 20210113
  Serious: Yes (Death, Other)
  Sender: FDA-Public Use
  Company Number: US-PURDUE-USA-2020-0168437

PATIENT
  Age: 36 Year
  Sex: Male

DRUGS (2)
  1. OXYCODONE/ ACETAMINOPHEN TABLETS [Suspect]
     Active Substance: ACETAMINOPHEN\OXYCODONE HYDROCHLORIDE
     Indication: BACK INJURY
     Route: 048
  2. OXYCONTIN [Suspect]
     Active Substance: OXYCODONE HYDROCHLORIDE
     Indication: BACK INJURY
     Route: 048

REACTIONS (7)
  - Drug dependence [Unknown]
  - Overdose [Unknown]
  - Depression [Unknown]
  - Road traffic accident [Unknown]
  - Aggression [Unknown]
  - Cardiac hypertrophy [Fatal]
  - Arrhythmia [Fatal]

NARRATIVE: CASE EVENT DATE: 20000702
